FAERS Safety Report 5105868-1 (Version None)
Quarter: 2006Q3

REPORT INFORMATION
  Report Type: 
  Country: None (occurrence: None)
  Receive Date: 20060912
  Receipt Date: 20060823
  Transmission Date: 20061208
  Serious: Yes (Other)
  Sender: FDA-Public Use
  Company Number: US200608004997

PATIENT
  Age: 61 Year
  Sex: Female
  Weight: 70.7 kg

DRUGS (18)
  1. HUMULIN 70/30 [Suspect]
     Indication: DIABETES MELLITUS
     Dosage: 2/D; SEE IMAGE
  2. HUMULIN N [Suspect]
     Indication: DIABETES MELLITUS
     Dates: start: 20020101
  3. HUMAN INSULIN (RDNA ORIGIN) (HUMAN INSULIN (RDNA ORIGIN) UNKNOWN FORMU [Suspect]
     Indication: DIABETES MELLITUS
     Dates: start: 20020101
  4. FUROSEMIDE [Concomitant]
  5. ATENOLOL [Concomitant]
  6. ZESTRIL /USA/ (LISINOPRIL) [Concomitant]
  7. LIPITOR [Concomitant]
  8. PLAQUENIL [Concomitant]
  9. VIOXX /USA/ (ROFECOXIB) [Concomitant]
  10. ASPIRIN [Concomitant]
  11. NITROPASTE (GLYCERYL TRINITRATE) [Concomitant]
  12. VITAMINS [Concomitant]
  13. FISH OIL (FISH OIL) [Concomitant]
  14. PROBIOTICA /USA/ (LACTOBACILLUS REUTERI) [Concomitant]
  15. FLAXSEED OIL (LINSEED OIL) [Concomitant]
  16. LUMIGAN [Concomitant]
  17. AZOPT [Concomitant]
  18. PRED FORTE [Concomitant]

REACTIONS (26)
  - ABDOMINAL DISTENSION [None]
  - BASAL CELL CARCINOMA [None]
  - BLINDNESS [None]
  - BLOOD GLUCOSE DECREASED [None]
  - CATARACT [None]
  - CORNEAL DEFECT [None]
  - COW'S MILK INTOLERANCE [None]
  - CRYING [None]
  - DEPRESSED MOOD [None]
  - DIARRHOEA [None]
  - EYE IRRITATION [None]
  - EYE SWELLING [None]
  - FLATULENCE [None]
  - FOOD ALLERGY [None]
  - GASTRITIS [None]
  - GASTROOESOPHAGEAL REFLUX DISEASE [None]
  - GLAUCOMA [None]
  - HYPERHIDROSIS [None]
  - MENTAL STATUS CHANGES [None]
  - MOOD ALTERED [None]
  - NERVOUSNESS [None]
  - NEUROPATHY [None]
  - OPTIC NERVE INJURY [None]
  - SOMNOLENCE [None]
  - TREMOR [None]
  - WEIGHT INCREASED [None]
